FAERS Safety Report 6725203-2 (Version None)
Quarter: 2010Q2

REPORT INFORMATION
  Report Type: 
  Country: None (occurrence: None)
  Receive Date: 20100514
  Receipt Date: 20100512
  Transmission Date: 20101027
  Serious: Yes (Death)
  Sender: FDA-Public Use
  Company Number: PHFR2010GB00540

PATIENT
  Sex: Male

DRUGS (3)
  1. CLOZARIL [Suspect]
     Indication: SCHIZOPHRENIA
     Dosage: UNK
     Dates: start: 20031001
  2. CLOZARIL [Suspect]
     Dosage: UNK
     Dates: start: 20070703
  3. CLOZAPINE [Concomitant]
     Indication: SCHIZOPHRENIA
     Dosage: UNK
     Dates: end: 20041101

REACTIONS (1)
  - DEATH [None]
